FAERS Safety Report 5141450-8 (Version None)
Quarter: 2006Q4

REPORT INFORMATION
  Report Type: 
  Country: None (occurrence: None)
  Receive Date: 20061101
  Receipt Date: 20061024
  Transmission Date: 20070319
  Serious: Yes (Hospitalization, Other)
  Sender: FDA-Public Use
  Company Number: 2006SE05713

PATIENT
  Age: 892 Month
  Sex: Male

DRUGS (5)
  1. ATENOLOL [Suspect]
     Indication: HYPERTENSION
     Route: 048
     Dates: start: 19960101
  2. CELECOXIB [Suspect]
     Indication: BACK INJURY
     Dosage: DOSE: UNKNOWN
     Route: 048
     Dates: start: 20060801, end: 20060801
  3. QUINAPRIL HCL [Suspect]
     Indication: HYPERTENSION
     Route: 048
     Dates: start: 19980101
  4. ROPINIROLE HCL [Concomitant]
     Indication: PARKINSON'S DISEASE
     Route: 048
     Dates: start: 20041021
  5. ROPINIROLE HCL [Concomitant]
     Route: 048
     Dates: start: 20041217

REACTIONS (2)
  - BLOOD PRESSURE INCREASED [None]
  - DISORIENTATION [None]
